FAERS Safety Report 25586580 (Version 1)
Quarter: 2025Q3

REPORT INFORMATION
  Report Type: Spontaneous
  Country: US (occurrence: US)
  Receive Date: 20250721
  Receipt Date: 20250721
  Transmission Date: 20251021
  Serious: Yes (Other)
  Sender: SANOFI AVENTIS
  Company Number: US-SANOFI-02587975

PATIENT
  Age: 66 Year
  Sex: Male

DRUGS (2)
  1. AVALIDE [Suspect]
     Active Substance: HYDROCHLOROTHIAZIDE\IRBESARTAN
  2. SIPULEUCEL-T [Suspect]
     Active Substance: SIPULEUCEL-T

REACTIONS (14)
  - Systemic inflammatory response syndrome [Unknown]
  - Deep vein thrombosis [Unknown]
  - Haemorrhage intracranial [Unknown]
  - Pulmonary embolism [Unknown]
  - Dysphonia [Unknown]
  - Dysphagia [Unknown]
  - Mental status changes [Unknown]
  - Lethargy [Unknown]
  - Oedema [Unknown]
  - Chills [Unknown]
  - Vomiting [Unknown]
  - Pyrexia [Unknown]
  - Fatigue [Unknown]
  - Device occlusion [Unknown]
